FAERS Safety Report 4518514-2 (Version None)
Quarter: 2004Q4

REPORT INFORMATION
  Report Type: 
  Country: None (occurrence: None)
  Receive Date: 20041201
  Receipt Date: 20041115
  Transmission Date: 20050328
  Serious: Yes (Hospitalization)
  Sender: FDA-Public Use
  Company Number: 202793

PATIENT
  Age: 58 Year
  Sex: Female
  Weight: 61.6892 kg

DRUGS (2)
  1. AVONEX [Suspect]
     Indication: MULTIPLE SCLEROSIS
     Dosage: 30 UG; QW; IM
     Route: 030
     Dates: start: 20030716, end: 20040601
  2. AVONEX [Suspect]
     Indication: MULTIPLE SCLEROSIS
     Dosage: 30 UG; QW; IM
     Route: 030
     Dates: start: 20040601

REACTIONS (15)
  - ASTHENIA [None]
  - BALANCE DISORDER [None]
  - CHRONIC SINUSITIS [None]
  - CONDITION AGGRAVATED [None]
  - DEPRESSION [None]
  - EAR DISORDER [None]
  - EAR PAIN [None]
  - EXCORIATION [None]
  - EYE PAIN [None]
  - FALL [None]
  - INFLUENZA LIKE ILLNESS [None]
  - MULTIPLE SCLEROSIS [None]
  - MUSCLE ATROPHY [None]
  - SYSTEMIC LUPUS ERYTHEMATOSUS [None]
  - WOUND INFECTION STAPHYLOCOCCAL [None]
